FAERS Safety Report 9518294 (Version 1)
Quarter: 2013Q1

REPORT INFORMATION
  Report Type: Spontaneous
  Country: US (occurrence: None)
  Receive Date: 20130305
  Receipt Date: 20130305
  Transmission Date: 20140127
  Serious: Yes (Other)
  Sender: FDA-Public Use
  Company Number: 163-21880-12072307

PATIENT
  Age: 58 Year
  Sex: Female

DRUGS (10)
  1. REVLIMID [Suspect]
     Indication: PLASMA CELL MYELOMA IN REMISSION
     Dosage: 10 MG, 14 IN 14 D, PO
     Route: 048
     Dates: start: 20120629
  2. SIMVASTATIN [Concomitant]
  3. OXYCODONE-ACETAMINOPHEN (OXYCOCET) (UNKNOWN) [Concomitant]
  4. METFORMIN (METFORMIN) UNKNOWN) [Concomitant]
  5. NEXIUM (ESOMEPRAZOLE) (UNKNOWN) [Concomitant]
  6. PAXIL (PAROXETINE HYDROCHLORIDE) (UNKOWN) [Concomitant]
  7. ASPIRIN (ACETYLSALICYLIC ACID) (UNKNOWN) (ACETYLSALICYLIC ACID) [Concomitant]
  8. VALTREX (VALACICLOVIR HYDROCHLORIDE) (UNKNOWN) [Concomitant]
  9. DIOVAN (VALSARTAN) (UNKNOWN) [Concomitant]
  10. CLARINTIN (LORATADINE) (UNKNOWN) [Concomitant]

REACTIONS (7)
  - Grip strength decreased [None]
  - Musculoskeletal stiffness [None]
  - Mood altered [None]
  - Muscle spasms [None]
  - Diarrhoea [None]
  - Blood magnesium decreased [None]
  - Muscle spasms [None]
